FAERS Safety Report 6844382-X (Version None)
Quarter: 2010Q3

REPORT INFORMATION
  Report Type: 
  Country: None (occurrence: None)
  Receive Date: 20100715
  Receipt Date: 20100702
  Transmission Date: 20110219
  Serious: Yes (Other)
  Sender: FDA-Public Use
  Company Number: JP-JNJFOC-20100602321

PATIENT
  Sex: Male

DRUGS (10)
  1. FINIBAX [Suspect]
     Indication: SEPSIS
     Route: 041
  2. FINIBAX [Suspect]
     Indication: PSEUDOMONAS INFECTION
     Route: 041
  3. CIPROFLOXACIN [Concomitant]
     Indication: SEPSIS
     Route: 042
  4. CIPROFLOXACIN [Concomitant]
     Indication: PSEUDOMONAS INFECTION
     Route: 042
  5. NIFEDIPINE [Concomitant]
     Indication: HYPERTENSION
     Route: 048
  6. DIOVAN [Concomitant]
     Indication: HYPERTENSION
     Route: 048
  7. GASTER D [Concomitant]
     Indication: GASTRITIS
     Route: 048
  8. LULLAN [Concomitant]
     Indication: ANXIETY DISORDER
     Route: 048
  9. PAXIL [Concomitant]
     Indication: ANXIETY DISORDER
     Route: 048
  10. MUCOSTA [Concomitant]
     Indication: GASTRITIS
     Route: 048

REACTIONS (1)
  - CONVULSION [None]
